FAERS Safety Report 18242850 (Version 2)
Quarter: 2020Q3

REPORT INFORMATION
  Report Type: Spontaneous
  Country: US (occurrence: US)
  Receive Date: 20200908
  Receipt Date: 20200917
  Transmission Date: 20201103
  Serious: Yes (Other)
  Sender: FDA-Public Use
  Company Number: US-AKORN PHARMACEUTICALS-2020AKN01142

PATIENT
  Age: 15 Year
  Sex: Male
  Weight: 75 kg

DRUGS (2)
  1. MYORISAN [Suspect]
     Active Substance: ISOTRETINOIN
     Indication: ACNE
     Dosage: 30 MG, 1X/DAY
     Route: 048
     Dates: start: 20200408, end: 2020
  2. MYORISAN [Suspect]
     Active Substance: ISOTRETINOIN
     Dosage: 90 MG, 1X/DAY
     Route: 048
     Dates: start: 20200408, end: 2020

REACTIONS (2)
  - Off label use [Recovered/Resolved]
  - Depression [Recovered/Resolved]

NARRATIVE: CASE EVENT DATE: 20200408
